FAERS Safety Report 9637548 (Version 2)
Quarter: 2013Q4

REPORT INFORMATION
  Report Type: Spontaneous
  Country: US (occurrence: US)
  Receive Date: 20131022
  Receipt Date: 20131129
  Transmission Date: 20140711
  Serious: Yes (Other)
  Sender: FDA-Public Use
  Company Number: US-ASTRAZENECA-2013SE76515

PATIENT
  Age: 68 Year
  Sex: Male
  Weight: 104.3 kg

DRUGS (1)
  1. SYMBICORT [Suspect]
     Indication: PULMONARY FIBROSIS
     Dosage: 160/4.5 MCG 2 PUFFS TWO TIMES A DAY
     Route: 055
     Dates: start: 2011

REACTIONS (6)
  - Cataract [Unknown]
  - Dyspnoea [Unknown]
  - Exercise tolerance decreased [Unknown]
  - Incorrect product storage [Unknown]
  - Intentional drug misuse [Unknown]
  - Off label use [Unknown]
